FAERS Safety Report 7427097-9 (Version None)
Quarter: 2011Q2

REPORT INFORMATION
  Report Type: 
  Country: None (occurrence: None)
  Receive Date: 20110420
  Receipt Date: 20110413
  Transmission Date: 20111010
  Serious: Yes (Hospitalization, Other)
  Sender: FDA-Public Use
  Company Number: US-US-EMD SERONO, INC.-7048245

PATIENT
  Sex: Female
  Weight: 54 kg

DRUGS (6)
  1. UNSPECIFIED MEDICATION [Concomitant]
     Indication: EPILEPSY
  2. ASPIRIN [Concomitant]
     Indication: PREMEDICATION
  3. REBIF [Suspect]
     Indication: PRODUCT USED FOR UNKNOWN INDICATION
     Route: 058
     Dates: start: 20110104, end: 20110116
  4. VITAMINS [Concomitant]
  5. UNSPECIFIED MEDICATION [Concomitant]
     Indication: GASTROINTESTINAL DISORDER
  6. REBIF [Suspect]
     Route: 058
     Dates: start: 20110410

REACTIONS (3)
  - OVARIAN CYST [None]
  - NEPHROLITHIASIS [None]
  - PYREXIA [None]
